FAERS Safety Report 5745452-X (Version None)
Quarter: 2008Q2

REPORT INFORMATION
  Report Type: 
  Country: None (occurrence: None)
  Receive Date: 20080519
  Receipt Date: 20080226
  Transmission Date: 20081010
  Serious: No
  Sender: FDA-Public Use
  Company Number: TPA2007A02255

PATIENT
  Sex: Male
  Weight: 72.5755 kg

DRUGS (5)
  1. ROZEREM [Suspect]
     Indication: INSOMNIA
     Dosage: 8 MG, ONCE, PER ORAL
     Route: 048
     Dates: start: 20071001, end: 20071001
  2. ROZEREM [Suspect]
     Indication: MIDDLE INSOMNIA
     Dosage: 8 MG, ONCE, PER ORAL
     Route: 048
     Dates: start: 20071001, end: 20071001
  3. TRAZODONE HCL [Concomitant]
  4. LEXAPRO [Concomitant]
  5. LAMICTAL [Concomitant]

REACTIONS (3)
  - AGITATION [None]
  - INITIAL INSOMNIA [None]
  - POOR QUALITY SLEEP [None]
